FAERS Safety Report 7638426-5 (Version None)
Quarter: 2011Q3

REPORT INFORMATION
  Report Type: 
  Country: None (occurrence: None)
  Receive Date: 20110720
  Receipt Date: 20110708
  Transmission Date: 20111222
  Serious: Yes (Other)
  Sender: FDA-Public Use
  Company Number: 2011SP032142

PATIENT
  Age: 17 Year
  Sex: Female

DRUGS (1)
  1. IMPLANON [Suspect]
     Indication: PRODUCT USED FOR UNKNOWN INDICATION
     Dosage: 68 MG
     Dates: start: 20090609

REACTIONS (5)
  - HORMONE LEVEL ABNORMAL [None]
  - MALAISE [None]
  - SYNCOPE [None]
  - MENORRHAGIA [None]
  - MOOD SWINGS [None]
